FAERS Safety Report 5277519-7 (Version None)
Quarter: 2007Q1

REPORT INFORMATION
  Report Type: 
  Country: None (occurrence: None)
  Receive Date: 20070327
  Receipt Date: 20070319
  Transmission Date: 20070707
  Serious: Yes (Hospitalization)
  Sender: FDA-Public Use
  Company Number: CH-JNJFOC-20070304549

PATIENT
  Age: 60 Year
  Sex: Female

DRUGS (3)
  1. RISPERIDONE [Suspect]
  2. RISPERIDONE [Suspect]
     Indication: SCHIZOAFFECTIVE DISORDER
  3. LITHIUM CARBONATE [Interacting]
     Indication: SCHIZOAFFECTIVE DISORDER

REACTIONS (2)
  - DRUG INTERACTION [None]
  - ENCEPHALOPATHY [None]
